FAERS Safety Report 12183129 (Version 1)
Quarter: 2016Q1

REPORT INFORMATION
  Report Type: Spontaneous
  Country: JP (occurrence: JP)
  Receive Date: 20160316
  Receipt Date: 20160316
  Transmission Date: 20160526
  Serious: Yes (Other)
  Sender: FDA-Public Use
  Company Number: JP-XENOPORT, INC.-2016JP002362

PATIENT
  Age: 80 Year
  Sex: Male

DRUGS (15)
  1. IRBETAN [Suspect]
     Active Substance: IRBESARTAN
     Indication: PRODUCT USED FOR UNKNOWN INDICATION
  2. NEUPRO [Suspect]
     Active Substance: ROTIGOTINE
     Indication: DIABETIC NEUROPATHY
     Dosage: 2.25 MG, ONCE DAILY
     Route: 062
     Dates: start: 20150723, end: 20150805
  3. NEUPRO [Suspect]
     Active Substance: ROTIGOTINE
     Indication: RESTLESS LEGS SYNDROME
     Dosage: 4.5 MG, ONCE DAILY
     Route: 062
     Dates: start: 20150715, end: 201509
  4. LANTUS [Suspect]
     Active Substance: INSULIN GLARGINE
     Indication: PRODUCT USED FOR UNKNOWN INDICATION
  5. NEUPRO [Suspect]
     Active Substance: ROTIGOTINE
     Indication: RESTLESS LEGS SYNDROME
     Dosage: 2.25 MG, ONCE DAILY
     Route: 062
     Dates: start: 20150710, end: 20150714
  6. AMLODIN [Suspect]
     Active Substance: AMLODIPINE BESYLATE
     Indication: PRODUCT USED FOR UNKNOWN INDICATION
  7. URIEF [Suspect]
     Active Substance: SILODOSIN
     Indication: PRODUCT USED FOR UNKNOWN INDICATION
  8. OPALMON [Suspect]
     Active Substance: LIMAPROST
     Indication: PRODUCT USED FOR UNKNOWN INDICATION
  9. MEILAX [Suspect]
     Active Substance: ETHYL LOFLAZEPATE
     Indication: PRODUCT USED FOR UNKNOWN INDICATION
  10. REGNITE [Suspect]
     Active Substance: GABAPENTIN ENACARBIL
     Indication: RESTLESS LEGS SYNDROME
     Dosage: UNK
     Route: 048
     Dates: end: 201509
  11. NEUPRO [Suspect]
     Active Substance: ROTIGOTINE
     Dosage: 2.25 MG, ONCE DAILY
     Route: 062
     Dates: start: 20150824, end: 201509
  12. NOVORAPID [Suspect]
     Active Substance: INSULIN ASPART
     Indication: PRODUCT USED FOR UNKNOWN INDICATION
  13. LEXAPRO [Suspect]
     Active Substance: ESCITALOPRAM OXALATE
     Indication: PRODUCT USED FOR UNKNOWN INDICATION
  14. NEUPRO [Suspect]
     Active Substance: ROTIGOTINE
     Indication: DIABETIC NEUROPATHY
     Dosage: 9 MG, ONCE DAILY
     Route: 062
     Dates: start: 201509
  15. MOHRUS [Suspect]
     Active Substance: KETOPROFEN
     Indication: PRODUCT USED FOR UNKNOWN INDICATION

REACTIONS (6)
  - Nausea [Recovering/Resolving]
  - Malaise [Recovering/Resolving]
  - Depressive symptom [Recovering/Resolving]
  - Blood pressure decreased [Recovered/Resolved]
  - Blood glucose increased [Unknown]
  - Oedema peripheral [Recovered/Resolved]

NARRATIVE: CASE EVENT DATE: 20150806
